FAERS Safety Report 9544007 (Version 1)
Quarter: 2013Q2

REPORT INFORMATION
  Report Type: Spontaneous
  Country: US (occurrence: None)
  Receive Date: 20130524
  Receipt Date: 20130524
  Transmission Date: 20140414
  Serious: Yes (Other)
  Sender: FDA-Public Use
  Company Number: PHEH2013US001370

PATIENT
  Age: 1 Year
  Sex: Male

DRUGS (1)
  1. GILENYA (FINGOLIMOD) UNKNOWN [Suspect]
     Dosage: 0.5 MG, QD (MATERNAL), VIA LACTATION

REACTIONS (2)
  - Exposure during breast feeding [None]
  - Bronchitis [None]
